FAERS Safety Report 4329660-0 (Version None)
Quarter: 2004Q2

REPORT INFORMATION
  Report Type: 
  Country: None (occurrence: None)
  Receive Date: 20040401
  Receipt Date: 20040324
  Transmission Date: 20050107
  Serious: Yes (Disabling, Other)
  Sender: FDA-Public Use
  Company Number: PHBS2004NO04059

PATIENT
  Sex: Male

DRUGS (1)
  1. LAMISIL [Suspect]
     Route: 048
     Dates: start: 20011201, end: 20020301

REACTIONS (6)
  - ANGIOPATHY [None]
  - CIRCULATORY COLLAPSE [None]
  - DIABETES MELLITUS [None]
  - GENERAL PHYSICAL HEALTH DETERIORATION [None]
  - HYPERSENSITIVITY [None]
  - POISONING [None]
